FAERS Safety Report 6064518-0 (Version None)
Quarter: 2009Q1

REPORT INFORMATION
  Report Type: 
  Country: None (occurrence: None)
  Receive Date: 20090204
  Receipt Date: 20090129
  Transmission Date: 20090719
  Serious: Yes (Hospitalization)
  Sender: FDA-Public Use
  Company Number: A0745311A

PATIENT
  Age: 72 Year
  Sex: Male
  Weight: 86.4 kg

DRUGS (2)
  1. AVANDIA [Suspect]
     Route: 048
  2. GLUCOPHAGE [Concomitant]

REACTIONS (2)
  - CEREBROVASCULAR ACCIDENT [None]
  - HIP FRACTURE [None]
